FAERS Safety Report 11965758 (Version 1)
Quarter: 2016Q1

REPORT INFORMATION
  Report Type: Report from Study
  Country: CA (occurrence: CA)
  Receive Date: 20160127
  Receipt Date: 20160127
  Transmission Date: 20160526
  Serious: Yes (Death)
  Sender: FDA-Public Use
  Company Number: PHHY2016CA009673

PATIENT
  Age: 49 Year
  Sex: Female

DRUGS (1)
  1. SANDOSTATIN LAR DEPOT [Suspect]
     Active Substance: OCTREOTIDE ACETATE
     Indication: OVARIAN CANCER
     Dosage: 30 MG, QMO (ONCE A MONTH)
     Route: 030
     Dates: start: 20150519

REACTIONS (2)
  - Death [Fatal]
  - Product use issue [Unknown]

NARRATIVE: CASE EVENT DATE: 20150611
